FAERS Safety Report 10622615 (Version 1)
Quarter: 2014Q4

REPORT INFORMATION
  Report Type: Spontaneous
  Country: FR (occurrence: FR)
  Receive Date: 20141203
  Receipt Date: 20141203
  Transmission Date: 20150529
  Serious: Yes (Death)
  Sender: FDA-Public Use
  Company Number: FR-BRISTOL-MYERS SQUIBB COMPANY-21638812

PATIENT
  Age: 85 Year
  Sex: Female
  Weight: 42 kg

DRUGS (6)
  1. DETENSIEL [Concomitant]
     Active Substance: BISOPROLOL FUMARATE
     Indication: CARDIOVASCULAR DISORDER
  2. ATACAND [Concomitant]
     Active Substance: CANDESARTAN CILEXETIL
     Indication: CARDIOVASCULAR DISORDER
  3. YERVOY [Suspect]
     Active Substance: IPILIMUMAB
     Indication: MALIGNANT MELANOMA
     Dates: end: 20140924
  4. ICAZ [Concomitant]
     Active Substance: ISRADIPINE
     Indication: CARDIOVASCULAR DISORDER
  5. TAHOR [Concomitant]
     Active Substance: ATORVASTATIN CALCIUM
     Indication: CARDIOVASCULAR DISORDER
  6. DIAMICRON [Concomitant]
     Active Substance: GLICLAZIDE
     Indication: CARDIOVASCULAR DISORDER

REACTIONS (6)
  - Death [Fatal]
  - Gait disturbance [Unknown]
  - Weight decreased [Unknown]
  - Diarrhoea [Unknown]
  - Fatigue [Unknown]
  - Decreased appetite [Unknown]

NARRATIVE: CASE EVENT DATE: 20141013
